FAERS Safety Report 10130288 (Version 1)
Quarter: 2014Q2

REPORT INFORMATION
  Report Type: Spontaneous
  Country: US (occurrence: None)
  Receive Date: 20140425
  Receipt Date: 20140425
  Transmission Date: 20141212
  Serious: Yes (Hospitalization)
  Sender: FDA-Public Use
  Company Number: None

PATIENT
  Age: 36 Year
  Sex: Female
  Weight: 58.06 kg

DRUGS (2)
  1. CORTICOSTEROID [Suspect]
     Indication: BACK PAIN
     Dosage: 3 LUMBAR 15-SL LEFT SIDE?3X IN 6 MONTH?INJECTED INTO SPINAL AREA
     Dates: start: 20120407, end: 20120601
  2. CORTICOSTEROID [Suspect]
     Indication: SYRINGOMYELIA
     Dosage: 3 LUMBAR 15-SL LEFT SIDE?3X IN 6 MONTH?INJECTED INTO SPINAL AREA
     Dates: start: 20120407, end: 20120601

REACTIONS (3)
  - Transient ischaemic attack [None]
  - Neurological symptom [None]
  - Condition aggravated [None]
